FAERS Safety Report 7682382-0 (Version None)
Quarter: 2011Q3

REPORT INFORMATION
  Report Type: 
  Country: None (occurrence: None)
  Receive Date: 20110810
  Receipt Date: 20110727
  Transmission Date: 20111222
  Serious: Yes (Other)
  Sender: FDA-Public Use
  Company Number: JP-2011-11152

PATIENT
  Age: 85 Year
  Sex: Female

DRUGS (2)
  1. ARGATROBAN [Concomitant]
  2. PLETAL [Suspect]
     Indication: CEREBRAL INFARCTION
     Dosage: ORAL
     Route: 048

REACTIONS (3)
  - ANAEMIA [None]
  - SUPRAVENTRICULAR EXTRASYSTOLES [None]
  - COLON CANCER [None]
